FAERS Safety Report 17064222 (Version 1)
Quarter: 2019Q4

REPORT INFORMATION
  Report Type: Spontaneous
  Country: US (occurrence: US)
  Receive Date: 20191122
  Receipt Date: 20191122
  Transmission Date: 20200122
  Serious: No
  Sender: FDA-Public Use
  Company Number: US-TEVA-2019-US-1139715

PATIENT
  Sex: Male

DRUGS (1)
  1. CLONAZEPAM TEVA 1MG [Suspect]
     Active Substance: CLONAZEPAM
     Indication: ANXIETY
     Route: 065
     Dates: start: 201909

REACTIONS (2)
  - Drug ineffective [Unknown]
  - Rash [Unknown]
